FAERS Safety Report 5014377-X (Version None)
Quarter: 2006Q2

REPORT INFORMATION
  Report Type: 
  Country: None (occurrence: None)
  Receive Date: 20060525
  Receipt Date: 20060516
  Transmission Date: 20061013
  Serious: Yes (Other)
  Sender: FDA-Public Use
  Company Number: 2006064895

PATIENT
  Age: 65 Year
  Sex: Male

DRUGS (2)
  1. CABERGOLINE [Suspect]
     Indication: PARKINSON'S DISEASE
     Dosage: ORAL
     Route: 048
     Dates: start: 20030106, end: 20060501
  2. LEVODOPA (LEVODOPA) [Suspect]
     Indication: PARKINSON'S DISEASE

REACTIONS (2)
  - FIBROSIS [None]
  - HEART VALVE REPLACEMENT [None]
